FAERS Safety Report 20884878 (Version 1)
Quarter: 2022Q2

REPORT INFORMATION
  Report Type: Spontaneous
  Country: US (occurrence: US)
  Receive Date: 20220527
  Receipt Date: 20220527
  Transmission Date: 20220721
  Serious: Yes (Other)
  Sender: FDA-Public Use
  Company Number: US-SLATE RUN PHARMACEUTICALS-22US001104

PATIENT

DRUGS (4)
  1. BIVALIRUDIN [Suspect]
     Active Substance: BIVALIRUDIN
     Indication: Thrombosis prophylaxis
     Dosage: INTERMITTENT INFUSION AT SUBOPTIMAL DOSING
     Route: 042
  2. BIVALIRUDIN [Suspect]
     Active Substance: BIVALIRUDIN
     Dosage: UNK
     Route: 042
  3. OXYGEN [Concomitant]
     Active Substance: OXYGEN
     Indication: Hypoxia
  4. UNSPECIFIED INGREDIENT [Concomitant]
     Active Substance: UNSPECIFIED INGREDIENT
     Indication: Sedative therapy

REACTIONS (9)
  - Vascular pseudoaneurysm [Recovered/Resolved]
  - Lung consolidation [Recovered/Resolved]
  - Abdominal wall haematoma [Recovered/Resolved]
  - Anaemia [Recovered/Resolved]
  - Deep vein thrombosis [Recovered/Resolved]
  - Post procedural haemorrhage [Recovered/Resolved]
  - Rectal haemorrhage [Recovered/Resolved]
  - Lower gastrointestinal haemorrhage [Recovered/Resolved]
  - Off label use [Recovered/Resolved]
